FAERS Safety Report 17006764 (Version 1)
Quarter: 2019Q4

REPORT INFORMATION
  Report Type: Spontaneous
  Country: US (occurrence: US)
  Receive Date: 20191107
  Receipt Date: 20191107
  Transmission Date: 20200122
  Serious: No
  Sender: FDA-Public Use
  Company Number: US-TARO-2019TAR00006

PATIENT
  Age: 25 Year
  Sex: Female
  Weight: 63.49 kg

DRUGS (1)
  1. MUPIROCIN OINTMENT USP 2% [Suspect]
     Active Substance: MUPIROCIN
     Indication: INFECTED DERMAL CYST
     Dosage: UNK, 3X/DAY
     Route: 061
     Dates: start: 20181207, end: 201812

REACTIONS (3)
  - Pruritus [Recovered/Resolved]
  - Off label use [Recovered/Resolved]
  - Application site alopecia [Not Recovered/Not Resolved]

NARRATIVE: CASE EVENT DATE: 201812
